FAERS Safety Report 8190198-4 (Version None)
Quarter: 2012Q1

REPORT INFORMATION
  Report Type: 
  Country: None (occurrence: None)
  Receive Date: 20120307
  Receipt Date: 20120222
  Transmission Date: 20120608
  Serious: Yes (Hospitalization, Congenital Anomaly)
  Sender: FDA-Public Use
  Company Number: DE-MYLANLABS-2012S1003844

PATIENT
  Age: 0 Year
  Sex: Female
  Weight: 2.85 kg

DRUGS (6)
  1. RISPERDAL [Suspect]
     Dosage: 6 [MG/D ]/ UNTIL JULY 2010, APPROXIMATELY PREGNANCY WEEK 25, EXACT DATE NOT KNOWN
     Route: 064
  2. LORAZEPAM [Suspect]
     Dosage: 8 [MG/D ]/ IF REQUIRED UNTIL JUNE 2010, DOSAGE BETWEEN 2.5 MG/D AND 8 MG/D
     Route: 064
  3. FOLIC ACID [Concomitant]
     Indication: PROPHYLAXIS OF NEURAL TUBE DEFECT
     Route: 064
  4. LAMOTRIGINE [Suspect]
     Dosage: 200 [MG/D ]/ EXACT END DATE NOT KNOWN
     Route: 064
  5. TRIMIPRAMINE MALEATE [Suspect]
     Indication: DEPRESSION
     Dosage: 400 [MG/D ]/ UNTIL SEPTEMBER2010, APPROXIMATELY PREGNANCY WEEK 34, EXACT DATE NOT KNOWN
     Route: 064
  6. VENLAFAXINE HYDROCHLORIDE [Suspect]
     Dosage: 150 [MG/D ]/ UNTIL JULY 2010, APPROXIMATELY PREGNANCY WEEK 25, EXACT DATE NOT KNOWN
     Route: 064

REACTIONS (6)
  - MATERNAL EXPOSURE DURING PREGNANCY [None]
  - ATRIAL SEPTAL DEFECT [None]
  - COARCTATION OF THE AORTA [None]
  - PARACHUTE MITRAL VALVE [None]
  - VENTRICULAR SEPTAL DEFECT [None]
  - PATENT DUCTUS ARTERIOSUS [None]
